FAERS Safety Report 9225751 (Version 2)
Quarter: 2013Q2

REPORT INFORMATION
  Report Type: Spontaneous
  Country: SK (occurrence: SK)
  Receive Date: 20130411
  Receipt Date: 20130423
  Transmission Date: 20140414
  Serious: Yes (Hospitalization)
  Sender: FDA-Public Use
  Company Number: SK-GLAXOSMITHKLINE-B0882699A

PATIENT
  Age: 24 Year
  Sex: Male

DRUGS (3)
  1. TROBALT [Suspect]
     Indication: CONVULSION
     Dosage: 900MG PER DAY
     Route: 065
  2. LAMOTRIGINE [Concomitant]
  3. PREGABALIN [Concomitant]

REACTIONS (2)
  - Suicidal ideation [Recovered/Resolved]
  - Mental disorder [Recovered/Resolved]
